FAERS Safety Report 18533480 (Version 3)
Quarter: 2022Q3

REPORT INFORMATION
  Report Type: Other
  Country: CA (occurrence: CA)
  Receive Date: 20201123
  Receipt Date: 20220808
  Transmission Date: 20221027
  Serious: Yes (Other)
  Sender: FDA-Public Use
  Company Number: CA-APOTEX-2020AP022036

PATIENT
  Age: 40 Year
  Sex: Female

DRUGS (7)
  1. GABAPENTIN [Interacting]
     Active Substance: GABAPENTIN
     Indication: Migraine
     Dosage: 300 MILLIGRAM
     Route: 065
  2. GABAPENTIN [Interacting]
     Active Substance: GABAPENTIN
     Dosage: 600 MILLIGRAM
     Route: 065
  3. ZOPICLONE [Interacting]
     Active Substance: ZOPICLONE
     Indication: Product used for unknown indication
     Dosage: UNK
     Route: 065
  4. AIMOVIG [Interacting]
     Active Substance: ERENUMAB-AOOE
     Indication: Migraine
     Dosage: UNK
     Route: 065
  5. AIMOVIG [Interacting]
     Active Substance: ERENUMAB-AOOE
     Dosage: 140 MILLIGRAM, Q.M.T.
     Route: 058
  6. TOPAMAX [Interacting]
     Active Substance: TOPIRAMATE
     Indication: Product used for unknown indication
     Dosage: UNK
     Route: 065
  7. ERENUMAB-AOOE [Interacting]
     Active Substance: ERENUMAB-AOOE
     Indication: Migraine
     Dosage: UNK
     Route: 065

REACTIONS (12)
  - Blood pressure increased [Recovered/Resolved]
  - Drug interaction [Recovered/Resolved]
  - Feeling hot [Recovered/Resolved]
  - Aphasia [Recovered/Resolved]
  - Hyperhidrosis [Recovered/Resolved]
  - Migraine [Recovered/Resolved]
  - Gastrointestinal haemorrhage [Recovered/Resolved]
  - Panic attack [Recovered/Resolved]
  - Amnesia [Recovered/Resolved]
  - Diarrhoea [Recovered/Resolved]
  - Mental impairment [Recovered/Resolved]
  - Drug ineffective [Recovered/Resolved]
